FAERS Safety Report 10518128 (Version 1)
Quarter: 2014Q4

REPORT INFORMATION
  Report Type: Spontaneous
  Country: US (occurrence: US)
  Receive Date: 20141015
  Receipt Date: 20141015
  Transmission Date: 20150528
  Serious: No
  Sender: FDA-Public Use
  Company Number: US-BIOGENIDEC-2014BI104862

PATIENT
  Age: 60 Year
  Sex: Male

DRUGS (12)
  1. LYRICA [Concomitant]
     Active Substance: PREGABALIN
  2. WELLBUTRIN [Concomitant]
     Active Substance: BUPROPION HYDROCHLORIDE
  3. PERCOCET [Concomitant]
     Active Substance: ACETAMINOPHEN\OXYCODONE HYDROCHLORIDE
  4. TECFIDERA [Suspect]
     Active Substance: DIMETHYL FUMARATE
     Indication: MULTIPLE SCLEROSIS
     Route: 048
     Dates: start: 20140321
  5. BACLOFEN. [Concomitant]
     Active Substance: BACLOFEN
  6. KEPPRA [Concomitant]
     Active Substance: LEVETIRACETAM
  7. TYLENOL [Concomitant]
     Active Substance: ACETAMINOPHEN
  8. CYMBALTA [Concomitant]
     Active Substance: DULOXETINE HYDROCHLORIDE
  9. ANTIVERT [Concomitant]
     Active Substance: MECLIZINE HYDROCHLORIDE
  10. BENADRYL [Concomitant]
     Active Substance: DIPHENHYDRAMINE HYDROCHLORIDE
  11. BABY ASPIRIN [Concomitant]
     Active Substance: ASPIRIN
  12. HEPAR COMPOSITUM [Concomitant]

REACTIONS (1)
  - Systemic lupus erythematosus [Unknown]

NARRATIVE: CASE EVENT DATE: 20140902
